FAERS Safety Report 9431932 (Version 1)
Quarter: 2013Q3

REPORT INFORMATION
  Report Type: Spontaneous
  Country: CA (occurrence: CA)
  Receive Date: 20130731
  Receipt Date: 20130731
  Transmission Date: 20140515
  Serious: Yes (Other)
  Sender: FDA-Public Use
  Company Number: CA-TEVA-422019USA

PATIENT
  Age: 38 Year
  Sex: Male
  Weight: 60 kg

DRUGS (4)
  1. FINASTERIDE [Suspect]
     Dosage: 1 MILLIGRAM DAILY;
     Route: 048
  2. BUPROPION [Concomitant]
     Dosage: EXTENDED RELEASE
  3. FLUOXETINE [Concomitant]
  4. VITAMIN A [Concomitant]

REACTIONS (4)
  - Condition aggravated [Recovered/Resolved]
  - Depression [Recovered/Resolved]
  - Muscular weakness [Recovered/Resolved]
  - Paraesthesia [Recovered/Resolved]
